FAERS Safety Report 20888070 (Version 4)
Quarter: 2022Q3

REPORT INFORMATION
  Report Type: Report from Study
  Country: CL (occurrence: CL)
  Receive Date: 20220529
  Receipt Date: 20220728
  Transmission Date: 20221026
  Serious: Yes (Other)
  Sender: FDA-Public Use
  Company Number: CL-JNJFOC-20220549102

PATIENT
  Age: 5 Decade
  Sex: Male

DRUGS (1)
  1. SIMPONI [Suspect]
     Active Substance: GOLIMUMAB
     Indication: Psoriatic arthropathy
     Route: 058
     Dates: start: 20210106

REACTIONS (9)
  - Device related infection [Unknown]
  - Psoriatic arthropathy [Not Recovered/Not Resolved]
  - Renal surgery [Unknown]
  - Umbilical hernia [Unknown]
  - Tachycardia [Unknown]
  - Influenza [Unknown]
  - Product temperature excursion issue [Unknown]
  - Drug ineffective [Unknown]
  - Product dose omission issue [Unknown]
